FAERS Safety Report 8380600-7 (Version None)
Quarter: 2012Q2

REPORT INFORMATION
  Report Type: 
  Country: None (occurrence: None)
  Receive Date: 20120523
  Receipt Date: 20120516
  Transmission Date: 20120825
  Serious: Yes (Other)
  Sender: FDA-Public Use
  Company Number: US-BRISTOL-MYERS SQUIBB COMPANY-16539314

PATIENT
  Age: 72 Year
  Sex: Female
  Weight: 43 kg

DRUGS (2)
  1. PAMELOR [Concomitant]
  2. ABILIFY [Suspect]
     Indication: DEPRESSION

REACTIONS (1)
  - AFFECTIVE DISORDER [None]
